FAERS Safety Report 17455388 (Version 1)
Quarter: 2020Q1

REPORT INFORMATION
  Report Type: Spontaneous
  Country: US (occurrence: US)
  Receive Date: 20200225
  Receipt Date: 20200225
  Transmission Date: 20200409
  Serious: No
  Sender: FDA-Public Use
  Company Number: US-GW PHARMA-202002USGW00635

PATIENT

DRUGS (1)
  1. EPIDIOLEX [Suspect]
     Active Substance: CANNABIDIOL
     Indication: EPILEPSY
     Dosage: 17.7 MILLIGRAM/KILOGRAM, 1200 MILLIGRAM, QD
     Route: 048
     Dates: start: 20181220

REACTIONS (2)
  - Diarrhoea [Recovered/Resolved]
  - Somnolence [Recovered/Resolved]
